FAERS Safety Report 23539410 (Version 1)
Quarter: 2024Q1

REPORT INFORMATION
  Report Type: Spontaneous
  Country: GB (occurrence: GB)
  Receive Date: 20240219
  Receipt Date: 20240219
  Transmission Date: 20240409
  Serious: Yes (Hospitalization, Disabling, Other)
  Sender: FDA-Public Use
  Company Number: None

PATIENT
  Age: 76 Year
  Sex: Female

DRUGS (1)
  1. CIPROFLOXACIN [Suspect]
     Active Substance: CIPROFLOXACIN
     Indication: Lower respiratory tract infection
     Dosage: 500 MG, BID
     Route: 048
     Dates: start: 20231206

REACTIONS (4)
  - Tendon rupture [Recovering/Resolving]
  - Arthralgia [None]
  - Weight bearing difficulty [None]
  - Pain in extremity [None]

NARRATIVE: CASE EVENT DATE: 20231211
